FAERS Safety Report 25670555 (Version 1)
Quarter: 2025Q3

REPORT INFORMATION
  Report Type: Spontaneous
  Country: US (occurrence: None)
  Receive Date: 20250812
  Receipt Date: 20250812
  Transmission Date: 20251020
  Serious: Yes (Other)
  Sender: FDA-CTU
  Company Number: None

PATIENT
  Age: 64 Year
  Sex: Female
  Weight: 69.3 kg

DRUGS (1)
  1. NITROFURANTOIN [Suspect]
     Active Substance: NITROFURANTOIN
     Indication: Urinary tract infection
     Dates: start: 20250804, end: 20250805

REACTIONS (5)
  - Paraesthesia [None]
  - Neuralgia [None]
  - Pain in extremity [None]
  - Hypoaesthesia [None]
  - Sleep disorder [None]

NARRATIVE: CASE EVENT DATE: 20250805
